FAERS Safety Report 7793590-2 (Version None)
Quarter: 2011Q4

REPORT INFORMATION
  Report Type: 
  Country: None (occurrence: None)
  Receive Date: 20111003
  Receipt Date: 20110926
  Transmission Date: 20120403
  Serious: Yes (Other)
  Sender: FDA-Public Use
  Company Number: DE-BAYER-2011-091449

PATIENT
  Age: 40 Year
  Sex: Male

DRUGS (1)
  1. LEVITRA [Suspect]
     Indication: ERECTILE DYSFUNCTION
     Dosage: 2-3 TIMES/WEEK OVER 2-3 YEARS
     Route: 048
     Dates: end: 20110901

REACTIONS (2)
  - ABDOMINAL PAIN UPPER [None]
  - PORTAL VEIN THROMBOSIS [None]
